FAERS Safety Report 19134051 (Version 1)
Quarter: 2021Q2

REPORT INFORMATION
  Report Type: Spontaneous
  Country: US (occurrence: US)
  Receive Date: 20210414
  Receipt Date: 20210414
  Transmission Date: 20210717
  Serious: No
  Sender: FDA-Public Use
  Company Number: None

PATIENT
  Age: 76 Year
  Sex: Female

DRUGS (17)
  1. FOLIC ACID 1MG [Concomitant]
     Active Substance: FOLIC ACID
     Dates: start: 20190129
  2. TAMSULOSIN 0.4MG [Concomitant]
     Active Substance: TAMSULOSIN
     Dates: start: 20190129
  3. ALLOPURINOL 100MG [Concomitant]
     Active Substance: ALLOPURINOL
     Dates: start: 20190129
  4. LEVOTHYROXINE 0.125MG [Concomitant]
     Active Substance: LEVOTHYROXINE
     Dates: start: 20190129
  5. PREDNISONE 5MG [Concomitant]
     Active Substance: PREDNISONE
     Dates: start: 20190129
  6. GABAPENTIN 300MG [Concomitant]
     Active Substance: GABAPENTIN
     Dates: start: 20190129
  7. LANTUS SOLOSTAR [Concomitant]
     Active Substance: INSULIN GLARGINE
     Dates: start: 20190129
  8. ASPIRIN 81MG [Concomitant]
     Active Substance: ASPIRIN
     Dates: start: 20190129
  9. MULTIVITAMIN [Concomitant]
     Active Substance: VITAMINS
     Dates: start: 20200813
  10. DIALYVITE 800MG [Concomitant]
     Dates: start: 20200813
  11. AMLODIPINE [Concomitant]
     Active Substance: AMLODIPINE BESYLATE
     Dates: start: 20190129
  12. TACROLIMUS. [Suspect]
     Active Substance: TACROLIMUS
     Indication: RENAL TRANSPLANT
     Route: 048
     Dates: start: 20190313, end: 20210401
  13. CARVEDILOL 25MG [Concomitant]
     Active Substance: CARVEDILOL
     Dates: start: 20190129
  14. ROCALTROL 0.25MCG [Concomitant]
     Dates: start: 20190129
  15. VITAMIN D3 [Concomitant]
     Active Substance: CHOLECALCIFEROL
     Dates: start: 20190129
  16. MYFORTIC [Concomitant]
     Active Substance: MYCOPHENOLATE SODIUM
     Dates: start: 20190129
  17. IRON 325MG [Concomitant]
     Dates: start: 20190129

REACTIONS (2)
  - Haemodialysis [None]
  - Renal failure [None]

NARRATIVE: CASE EVENT DATE: 20210401
